FAERS Safety Report 11379888 (Version 2)
Quarter: 2015Q3

REPORT INFORMATION
  Report Type: Spontaneous
  Country: US (occurrence: US)
  Receive Date: 20150814
  Receipt Date: 20150821
  Transmission Date: 20151125
  Serious: Yes (Other)
  Sender: FDA-Public Use
  Company Number: US-ROCHE-1620595

PATIENT
  Sex: Female

DRUGS (2)
  1. PREDNISONE. [Concomitant]
     Active Substance: PREDNISONE
  2. XOLAIR [Suspect]
     Active Substance: OMALIZUMAB
     Indication: ASTHMA
     Route: 065

REACTIONS (7)
  - Erythema [Unknown]
  - Eye swelling [Unknown]
  - Skin tightness [Unknown]
  - Dysphonia [Unknown]
  - Aphonia [Unknown]
  - Swelling face [Unknown]
  - Nasal congestion [Unknown]
